FAERS Safety Report 8125108-9 (Version None)
Quarter: 2012Q1

REPORT INFORMATION
  Report Type: 
  Country: None (occurrence: None)
  Receive Date: 20120209
  Receipt Date: 20120201
  Transmission Date: 20120608
  Serious: Yes (Hospitalization)
  Sender: FDA-Public Use
  Company Number: JP-BRISTOL-MYERS SQUIBB COMPANY-16262230

PATIENT
  Age: 63 Year
  Sex: Male

DRUGS (7)
  1. FOLIC ACID [Concomitant]
     Indication: PROPHYLAXIS
  2. PREDNISOLONE [Suspect]
     Indication: RHEUMATOID ARTHRITIS
     Route: 048
     Dates: start: 20090601
  3. INFLIXIMAB [Concomitant]
     Indication: RHEUMATOID ARTHRITIS
     Dates: start: 20091101, end: 20110415
  4. RABEPRAZOLE SODIUM [Concomitant]
     Indication: PROPHYLAXIS AGAINST GASTROINTESTINAL ULCER
  5. SULFASALAZINE [Concomitant]
     Indication: RHEUMATOID ARTHRITIS
  6. ORENCIA [Suspect]
     Indication: RHEUMATOID ARTHRITIS
     Dosage: OVER 30 MINS,17JUN11,INTERRUPTED ON 01JUL11, 29AUG11,26SEP11,24OCT11,21NOV11
     Route: 041
     Dates: start: 20110603
  7. METHOTREXATE [Suspect]
     Indication: RHEUMATOID ARTHRITIS
     Dosage: BEFORE ABATACEPT FIRST ADMINISTRATION-23OCT11,24OCT11-ONG;8MG/WK

REACTIONS (2)
  - ENTEROCOLITIS [None]
  - RENAL FAILURE ACUTE [None]
